FAERS Safety Report 19257732 (Version 1)
Quarter: 2021Q2

REPORT INFORMATION
  Report Type: Report from Study
  Country: None (occurrence: US)
  Receive Date: 20210514
  Receipt Date: 20210514
  Transmission Date: 20210717
  Serious: Yes (Other)
  Sender: FDA-Public Use
  Company Number: US-ABBVIE-21K-163-3886431-00

PATIENT
  Age: 73 Year
  Sex: Female
  Weight: 73.55 kg

DRUGS (1)
  1. HUMIRA [Suspect]
     Active Substance: ADALIMUMAB
     Indication: PSORIASIS
     Dosage: START: 10 YEARS AGO
     Route: 058
     Dates: start: 2011, end: 20210422

REACTIONS (5)
  - Scab [Not Recovered/Not Resolved]
  - Skin exfoliation [Not Recovered/Not Resolved]
  - Irritability [Not Recovered/Not Resolved]
  - Psoriasis [Not Recovered/Not Resolved]
  - Brain neoplasm [Recovering/Resolving]

NARRATIVE: CASE EVENT DATE: 202012
